FAERS Safety Report 23137372 (Version 1)
Quarter: 2023Q4

REPORT INFORMATION
  Report Type: Spontaneous
  Country: MX (occurrence: None)
  Receive Date: 20231102
  Receipt Date: 20231102
  Transmission Date: 20240110
  Serious: Yes (Other)
  Sender: FDA-Public Use
  Company Number: MX-ROCHE-3450761

PATIENT
  Age: 16 Year
  Sex: Male
  Weight: 47 kg

DRUGS (1)
  1. RITUXIMAB [Suspect]
     Active Substance: RITUXIMAB
     Indication: Multiple sclerosis
     Dosage: 1 G EVERY 15 DAYS (EACH CYCLE); 1 CYCLE EVERY 6 MONTHS
     Route: 041
     Dates: start: 202301

REACTIONS (2)
  - Off label use [Unknown]
  - Glaucoma [Recovering/Resolving]

NARRATIVE: CASE EVENT DATE: 20230801
